FAERS Safety Report 7770387-0 (Version None)
Quarter: 2011Q3

REPORT INFORMATION
  Report Type: 
  Country: None (occurrence: None)
  Receive Date: 20110922
  Receipt Date: 20110118
  Transmission Date: 20111222
  Serious: No
  Sender: FDA-Public Use
  Company Number: US-ASTRAZENECA-2010SE58599

PATIENT
  Sex: Male

DRUGS (1)
  1. SEROQUEL [Suspect]
     Route: 048
     Dates: start: 20090101

REACTIONS (19)
  - INSOMNIA [None]
  - LETHARGY [None]
  - DRUG DEPENDENCE [None]
  - DIZZINESS [None]
  - MUSCLE TWITCHING [None]
  - DIABETES MELLITUS [None]
  - DYSPNOEA EXERTIONAL [None]
  - WITHDRAWAL SYNDROME [None]
  - WEIGHT LOSS POOR [None]
  - BACK PAIN [None]
  - ASPARTATE AMINOTRANSFERASE INCREASED [None]
  - PAIN [None]
  - MOVEMENT DISORDER [None]
  - DRUG DOSE OMISSION [None]
  - HYPERHIDROSIS [None]
  - WEIGHT INCREASED [None]
  - ASTHENIA [None]
  - DISCOMFORT [None]
  - BLOOD GLUCOSE INCREASED [None]
